FAERS Safety Report 6223070-7 (Version None)
Quarter: 2009Q2

REPORT INFORMATION
  Report Type: 
  Country: None (occurrence: None)
  Receive Date: 20090609
  Receipt Date: 20090526
  Transmission Date: 20091009
  Serious: Yes (Hospitalization)
  Sender: FDA-Public Use
  Company Number: 2009-193851-NL

PATIENT
  Age: 38 Year
  Sex: Female
  Weight: 53 kg

DRUGS (7)
  1. PUREGON [Suspect]
     Indication: OVARIAN DISORDER
     Dosage: 300 IU DAILY INTRAMUSCULAR
     Route: 030
     Dates: start: 20060519, end: 20060524
  2. PREGNYL [Suspect]
     Indication: LUTEAL PHASE DEFICIENCY
     Dosage: 5000 IU ONCE
     Dates: start: 20060527, end: 20060527
  3. SUPRECUR [Concomitant]
  4. PROFASI HP [Concomitant]
  5. PROGEHORMON [Concomitant]
  6. PROGESTERONE VAGINAL [Concomitant]
  7. ESTRADERM [Concomitant]

REACTIONS (3)
  - ABORTION SPONTANEOUS [None]
  - DRUG EXPOSURE DURING PREGNANCY [None]
  - PREGNANCY TEST POSITIVE [None]
